APPROVED DRUG PRODUCT: MEMANTINE HYDROCHLORIDE
Active Ingredient: MEMANTINE HYDROCHLORIDE
Strength: 5MG
Dosage Form/Route: TABLET;ORAL
Application: A206528 | Product #001 | TE Code: AB
Applicant: AJANTA PHARMA LTD
Approved: Nov 30, 2015 | RLD: No | RS: No | Type: RX